FAERS Safety Report 15804116 (Version 1)
Quarter: 2019Q1

REPORT INFORMATION
  Report Type: Spontaneous
  Country: FR (occurrence: FR)
  Receive Date: 20190109
  Receipt Date: 20190109
  Transmission Date: 20190417
  Serious: Yes (Hospitalization)
  Sender: FDA-Public Use
  Company Number: FR-ANIPHARMA-2019-FR-000001

PATIENT
  Age: 76 Year
  Sex: Female

DRUGS (1)
  1. CANDESARTAN HCT [Suspect]
     Active Substance: CANDESARTAN CILEXETIL\HYDROCHLOROTHIAZIDE
     Indication: HYPERTENSION
     Dosage: 8/12,5 MG AT 1 TABLET DAILY
     Route: 048
     Dates: end: 20181229

REACTIONS (4)
  - Blood potassium decreased [Unknown]
  - Blood urea decreased [Unknown]
  - Fall [Unknown]
  - Fractured coccyx [Unknown]

NARRATIVE: CASE EVENT DATE: 201804
